FAERS Safety Report 10648685 (Version 3)
Quarter: 2015Q1

REPORT INFORMATION
  Report Type: Spontaneous
  Country: DE (occurrence: DE)
  Receive Date: 20141212
  Receipt Date: 20150203
  Transmission Date: 20150720
  Serious: Yes (Other)
  Sender: FDA-Public Use
  Company Number: DE-UCBSA-2014017973

PATIENT
  Age: 83 Year
  Sex: Female
  Weight: 70 kg

DRUGS (1)
  1. KEPPRA [Suspect]
     Active Substance: LEVETIRACETAM
     Indication: EPILEPSY
     Dosage: 1000 MG, 2X/DAY (BID)
     Route: 048
     Dates: start: 20140917, end: 20140926

REACTIONS (7)
  - Tremor [Unknown]
  - Balance disorder [Recovered/Resolved]
  - Disturbance in attention [Unknown]
  - Aphasia [Unknown]
  - Amnesia [Unknown]
  - Confusional state [Unknown]
  - Speech disorder [Recovered/Resolved]

NARRATIVE: CASE EVENT DATE: 2014
